FAERS Safety Report 16235464 (Version 4)
Quarter: 2020Q4

REPORT INFORMATION
  Report Type: Spontaneous
  Country: US (occurrence: US)
  Receive Date: 20190424
  Receipt Date: 20201216
  Transmission Date: 20210113
  Serious: No
  Sender: FDA-Public Use
  Company Number: US-VIFOR (INTERNATIONAL) INC.-VIT-2019-03749

PATIENT
  Age: 69 Year
  Sex: Female

DRUGS (10)
  1. VELTASSA [Suspect]
     Active Substance: PATIROMER
     Route: 048
  2. BENICAR [Concomitant]
     Active Substance: OLMESARTAN MEDOXOMIL
  3. VYTORIN [Concomitant]
     Active Substance: EZETIMIBE\SIMVASTATIN
  4. FUROSEMIDE. [Concomitant]
     Active Substance: FUROSEMIDE
  5. VELTASSA [Suspect]
     Active Substance: PATIROMER
     Route: 048
  6. ASPIRIN 81 [Concomitant]
     Active Substance: ASPIRIN
  7. CB12-ACTIVE [Concomitant]
  8. VITAMIN D [Concomitant]
     Active Substance: VITAMIN D NOS
  9. VELTASSA [Suspect]
     Active Substance: PATIROMER
     Indication: HYPERKALAEMIA
     Route: 048
     Dates: start: 20160618
  10. COLACE [Concomitant]
     Active Substance: DOCUSATE SODIUM

REACTIONS (5)
  - Product dose omission issue [Unknown]
  - Mouth swelling [Unknown]
  - Flatulence [Not Recovered/Not Resolved]
  - Illness [Unknown]
  - Off label use [Unknown]

NARRATIVE: CASE EVENT DATE: 20160618
